FAERS Safety Report 21931168 (Version 5)
Quarter: 2023Q2

REPORT INFORMATION
  Report Type: Spontaneous
  Country: LT (occurrence: LT)
  Receive Date: 20230131
  Receipt Date: 20230409
  Transmission Date: 20230721
  Serious: Yes (Hospitalization, Other)
  Sender: FDA-Public Use
  Company Number: LT-JNJFOC-20230147917

PATIENT
  Age: 61 Year
  Sex: Female
  Weight: 76 kg

DRUGS (8)
  1. DARZALEX [Suspect]
     Active Substance: DARATUMUMAB
     Indication: Plasma cell myeloma
     Dosage: ON DAY 1 AND 8 (2 COURSES OF TREATMENT WERE PRESCRIBED)
     Route: 042
     Dates: start: 20221108, end: 20221222
  2. DEXAMETHASONE [Suspect]
     Active Substance: DEXAMETHASONE
     Indication: Plasma cell myeloma
     Dosage: DAY1 -2, 8-9
     Route: 065
     Dates: start: 20221108, end: 20230104
  3. ETOPOSIDE [Concomitant]
     Active Substance: ETOPOSIDE
     Indication: Plasma cell myeloma
     Dosage: DAY 4-7
     Route: 042
     Dates: start: 20221111, end: 20221221
  4. DOXORUBICIN [Concomitant]
     Active Substance: DOXORUBICIN
     Indication: Plasma cell myeloma
     Dosage: DAY 4 -7
     Route: 042
     Dates: start: 20221111, end: 20221221
  5. CYCLOPHOSPHAMIDE [Concomitant]
     Active Substance: CYCLOPHOSPHAMIDE
     Indication: Plasma cell myeloma
     Dosage: DAY 4-7
     Route: 042
     Dates: start: 20221111, end: 20221221
  6. THALIDOMIDE [Concomitant]
     Active Substance: THALIDOMIDE
     Indication: Plasma cell myeloma
     Route: 048
     Dates: start: 20221108, end: 20230104
  7. CARFILZOMIB [Concomitant]
     Active Substance: CARFILZOMIB
     Indication: Plasma cell myeloma
     Dosage: DAY 1-2, 8-9,
     Route: 042
     Dates: start: 20221108, end: 20221223
  8. CISPLATIN [Concomitant]
     Active Substance: CISPLATIN
     Indication: Plasma cell myeloma
     Dosage: DAY 4-7
     Route: 042
     Dates: start: 20221111, end: 20221221

REACTIONS (4)
  - Pulmonary alveolar haemorrhage [Recovered/Resolved with Sequelae]
  - Pancytopenia [Recovered/Resolved]
  - Therapeutic response decreased [Unknown]
  - Intentional product use issue [Unknown]

NARRATIVE: CASE EVENT DATE: 20230102
